FAERS Safety Report 17894012 (Version 1)
Quarter: 2020Q2

REPORT INFORMATION
  Report Type: Spontaneous
  Country: US (occurrence: US)
  Receive Date: 20200615
  Receipt Date: 20200615
  Transmission Date: 20200714
  Serious: Yes (Other)
  Sender: FDA-Public Use
  Company Number: US-INTERCEPT-PMOCA2018000822

PATIENT
  Sex: Male

DRUGS (1)
  1. OCALIVA [Suspect]
     Active Substance: OBETICHOLIC ACID
     Indication: PRIMARY BILIARY CHOLANGITIS
     Dosage: UNK
     Route: 048
     Dates: start: 2017

REACTIONS (2)
  - Cholecystectomy [Recovered/Resolved]
  - Gallbladder polyp [Recovered/Resolved]

NARRATIVE: CASE EVENT DATE: 202005
